FAERS Safety Report 7303312-7 (Version None)
Quarter: 2011Q1

REPORT INFORMATION
  Report Type: 
  Country: None (occurrence: None)
  Receive Date: 20110221
  Receipt Date: 20110214
  Transmission Date: 20110831
  Serious: Yes (Hospitalization)
  Sender: FDA-Public Use
  Company Number: FR-ASTELLAS-2011US000550

PATIENT
  Sex: Male

DRUGS (14)
  1. KIDROLASE [Suspect]
     Dosage: 11000 IU, UID/QD
     Route: 042
     Dates: start: 20100828, end: 20100906
  2. ENDOXAN [Concomitant]
     Dosage: 550 MG, 1-2/DAY
     Route: 042
     Dates: start: 20100823, end: 20100826
  3. CERUBIDINE [Concomitant]
     Indication: ACUTE LYMPHOCYTIC LEUKAEMIA
     Dosage: 92 MG, UID/QD
     Route: 042
     Dates: start: 20100809, end: 20100811
  4. CERUBIDINE [Concomitant]
     Dosage: 55.2 MG, UID/QD
     Route: 042
     Dates: start: 20100823, end: 20100824
  5. CORTANCYL [Suspect]
     Dosage: 110.4 MG, UID/QD
     Route: 048
     Dates: start: 20100808, end: 20100822
  6. DEPO-MEDROL [Suspect]
     Indication: PRODUCT USED FOR UNKNOWN INDICATION
     Dosage: 40 MG, UNKNOWN/D
     Route: 037
     Dates: start: 20100809, end: 20100826
  7. CYTARABINE [Concomitant]
     Indication: ACUTE LYMPHOCYTIC LEUKAEMIA
     Dosage: 40 MG, UNKNOWN/D
     Route: 037
     Dates: start: 20100809, end: 20100826
  8. ENDOXAN [Concomitant]
     Indication: ACUTE LYMPHOCYTIC LEUKAEMIA
     Dosage: 1380 MG, UNKNOWN/D
     Route: 065
     Dates: start: 20100809
  9. AMBISOME [Suspect]
     Indication: PRODUCT USED FOR UNKNOWN INDICATION
     Dosage: 50 MG (0.5 DF), UNKNOWN/D
     Route: 042
     Dates: start: 20100813, end: 20100914
  10. KIDROLASE [Suspect]
     Indication: ACUTE LYMPHOCYTIC LEUKAEMIA
     Dosage: UNK
     Route: 042
     Dates: start: 20100809
  11. EMEND [Suspect]
     Indication: PRODUCT USED FOR UNKNOWN INDICATION
     Dosage: 80 MG UID/QD
     Route: 048
     Dates: start: 20100809, end: 20100820
  12. METHOTREXATE [Concomitant]
     Indication: ACUTE LYMPHOCYTIC LEUKAEMIA
     Dosage: UNK
     Route: 037
     Dates: start: 20100802, end: 20100826
  13. VINCRISTINE [Concomitant]
     Indication: ACUTE LYMPHOCYTIC LEUKAEMIA
     Dosage: 2 MG, UID/QD
     Route: 042
     Dates: start: 20100809, end: 20100830
  14. CORTANCYL [Suspect]
     Indication: ACUTE LYMPHOCYTIC LEUKAEMIA
     Dosage: 100 MG, UID/QD
     Route: 048
     Dates: start: 20100802, end: 20100808

REACTIONS (16)
  - INAPPROPRIATE ANTIDIURETIC HORMONE SECRETION [None]
  - HEPATIC FIBROSIS [None]
  - HYPONATRAEMIA [None]
  - HYPOPHOSPHATAEMIA [None]
  - APLASIA [None]
  - VANISHING BILE DUCT SYNDROME [None]
  - ACUTE HEPATIC FAILURE [None]
  - CONDITION AGGRAVATED [None]
  - CHOLESTASIS [None]
  - HEPATOTOXICITY [None]
  - HYPOGLYCAEMIA [None]
  - ACINETOBACTER INFECTION [None]
  - DIABETES MELLITUS [None]
  - COAGULOPATHY [None]
  - SEPSIS [None]
  - CYTOLYTIC HEPATITIS [None]
